FAERS Safety Report 7710296-6 (Version None)
Quarter: 2011Q3

REPORT INFORMATION
  Report Type: 
  Country: None (occurrence: None)
  Receive Date: 20110825
  Receipt Date: 20110819
  Transmission Date: 20111222
  Serious: Yes (Other)
  Sender: FDA-Public Use
  Company Number: US-B.I. PHARMACEUTICALS,INC./RIDGEFIELD-2011-BP-17701BP

PATIENT
  Sex: Male
  Weight: 68.04 kg

DRUGS (7)
  1. PREVACID [Concomitant]
     Indication: OESOPHAGEAL CARCINOMA
     Dosage: 60 MG
     Route: 048
  2. PRADAXA [Suspect]
     Indication: ATRIAL FIBRILLATION
     Dosage: 300 MG
     Route: 048
     Dates: start: 20110530, end: 20110621
  3. ZOCOR [Concomitant]
     Indication: BLOOD CHOLESTEROL INCREASED
     Dosage: 20 MG
     Route: 048
  4. TOPROL-XL [Concomitant]
     Indication: HYPERTENSION
     Dosage: 50 MG
     Route: 048
  5. ZYLOPRIM [Concomitant]
     Indication: GOUT
     Dosage: 100 MG
     Route: 048
  6. ASPIRIN [Concomitant]
     Indication: ATRIAL FIBRILLATION
     Dosage: 81 MG
     Route: 048
  7. LANOXIN [Concomitant]
     Indication: ATRIAL FIBRILLATION
     Dosage: 0.25 MG
     Route: 048

REACTIONS (13)
  - WEIGHT DECREASED [None]
  - PAIN [None]
  - ASTHENIA [None]
  - DIZZINESS [None]
  - SWELLING [None]
  - PAIN IN EXTREMITY [None]
  - CARDIAC ABLATION [None]
  - DEPRESSION [None]
  - RASH [None]
  - MALAISE [None]
  - NAUSEA [None]
  - DECREASED APPETITE [None]
  - VISION BLURRED [None]
